FAERS Safety Report 7332262-5 (Version None)
Quarter: 2011Q1

REPORT INFORMATION
  Report Type: 
  Country: None (occurrence: None)
  Receive Date: 20110304
  Receipt Date: 20110224
  Transmission Date: 20110831
  Serious: Yes (Other)
  Sender: FDA-Public Use
  Company Number: JP-ROCHE-744172

PATIENT
  Sex: Female

DRUGS (12)
  1. CYCLOPHOSPHAMIDE [Concomitant]
     Route: 041
     Dates: start: 20100112, end: 20100112
  2. TAXOTERE [Concomitant]
     Route: 041
     Dates: start: 20091201, end: 20091201
  3. CYCLOPHOSPHAMIDE [Concomitant]
     Route: 041
     Dates: start: 20091110, end: 20091110
  4. XELODA [Suspect]
     Route: 048
     Dates: start: 20100112, end: 20100125
  5. XELODA [Suspect]
     Dosage: 600MG MORNING IN 900MG MORNING
     Route: 048
     Dates: start: 20091201, end: 20091214
  6. TAXOTERE [Concomitant]
     Route: 041
     Dates: start: 20100112, end: 20100112
  7. CYCLOPHOSPHAMIDE [Concomitant]
     Route: 041
     Dates: start: 20091201, end: 20091201
  8. XELODA [Suspect]
     Indication: BREAST CANCER
     Route: 048
     Dates: start: 20091110, end: 20091123
  9. XELODA [Suspect]
     Route: 048
     Dates: start: 20091222, end: 20100104
  10. TAXOTERE [Concomitant]
     Route: 041
     Dates: start: 20091110, end: 20091110
  11. TAXOTERE [Concomitant]
     Route: 041
     Dates: start: 20091222, end: 20091222
  12. CYCLOPHOSPHAMIDE [Concomitant]
     Route: 041
     Dates: start: 20091222, end: 20091222

REACTIONS (2)
  - NAUSEA [None]
  - FEBRILE NEUTROPENIA [None]
